FAERS Safety Report 6376529-6 (Version None)
Quarter: 2009Q3

REPORT INFORMATION
  Report Type: 
  Country: None (occurrence: None)
  Receive Date: 20090925
  Receipt Date: 20090916
  Transmission Date: 20100115
  Serious: Yes (Hospitalization)
  Sender: FDA-Public Use
  Company Number: CH-PFIZER INC-2009269481

PATIENT
  Age: 78 Year

DRUGS (9)
  1. NORVASC [Suspect]
     Dosage: 5 MG, 1X/DAY
     Route: 048
     Dates: start: 20080101
  2. CONCOR [Suspect]
     Dosage: 5 MG, 1X/DAY
     Route: 048
     Dates: start: 20050101, end: 20090528
  3. CONCOR [Suspect]
     Dosage: 2.5 MG, 1X/DAY
     Route: 048
     Dates: start: 20090529
  4. EXELON [Suspect]
     Dosage: 1.5 MG, 1X/DAY
     Route: 048
     Dates: start: 20090721, end: 20090728
  5. EXELON [Suspect]
     Dosage: 3 MG, 1X/DAY
     Route: 048
     Dates: start: 20090729
  6. LEPONEX ^NOVARTIS^ [Suspect]
     Dosage: 25 MG, 1X/DAY
     Route: 048
     Dates: start: 20090731, end: 20090731
  7. LEPONEX ^NOVARTIS^ [Suspect]
     Dosage: 6.25 MG, 1X/DAY
     Dates: start: 20090801
  8. ATORVASTATIN CALCIUM [Concomitant]
     Dosage: 10 MG, 1X/DAY
     Route: 048
     Dates: start: 20070101
  9. ASPIRIN [Concomitant]
     Dosage: 100 MG, 1X/DAY
     Route: 048
     Dates: start: 20050101

REACTIONS (1)
  - CIRCULATORY COLLAPSE [None]
